FAERS Safety Report 4995887-8 (Version None)
Quarter: 2006Q2

REPORT INFORMATION
  Report Type: 
  Country: None (occurrence: None)
  Receive Date: 20060508
  Receipt Date: 20050628
  Transmission Date: 20061013
  Serious: Yes (Hospitalization)
  Sender: FDA-Public Use
  Company Number: US-MERCK-0506USA03984

PATIENT
  Age: 75 Year
  Sex: Female
  Weight: 65 kg

DRUGS (3)
  1. VIOXX [Suspect]
     Indication: BLOOD CHOLESTEROL INCREASED
     Route: 048
     Dates: start: 19990101
  2. GARLIC [Concomitant]
     Route: 065
  3. VITAMIN E [Concomitant]
     Route: 065

REACTIONS (2)
  - HIP ARTHROPLASTY [None]
  - MYOCARDIAL INFARCTION [None]
